FAERS Safety Report 5803604-4 (Version None)
Quarter: 2008Q3

REPORT INFORMATION
  Report Type: 
  Country: None (occurrence: None)
  Receive Date: 20080708
  Receipt Date: 20080623
  Transmission Date: 20090109
  Serious: Yes (Death)
  Sender: FDA-Public Use
  Company Number: CA-GENENTECH-263855

PATIENT

DRUGS (6)
  1. MABTHERA [Suspect]
     Indication: CASTLEMAN'S DISEASE
     Dosage: 375 MG/M2, 1/WEEK
     Dates: start: 20031201, end: 20050301
  2. CYCLOPHOSPHAMIDE [Suspect]
     Indication: CASTLEMAN'S DISEASE
     Dosage: 750 MG/M2, UNK
     Route: 065
     Dates: start: 20031201
  3. DOXORUBICIN HCL [Suspect]
     Indication: CASTLEMAN'S DISEASE
     Dosage: 50 MG/M2, UNK
     Route: 065
     Dates: start: 20031201
  4. VINCRISTINE [Suspect]
     Indication: CASTLEMAN'S DISEASE
     Dosage: 2 MG, UNK
     Route: 065
     Dates: start: 20031201
  5. PREDNISONE TAB [Suspect]
     Indication: CASTLEMAN'S DISEASE
     Dosage: 100 MG, UNK
     Route: 048
     Dates: start: 20031201
  6. DOXORUBICIN HCL [Suspect]
     Indication: CASTLEMAN'S DISEASE
     Dosage: 20 MG/M2, UNK
     Route: 065
     Dates: start: 20031201

REACTIONS (3)
  - DEATH [None]
  - FEBRILE NEUTROPENIA [None]
  - KAPOSI'S SARCOMA [None]
